FAERS Safety Report 14301391 (Version 2)
Quarter: 2018Q2

REPORT INFORMATION
  Report Type: Spontaneous
  Country: BR (occurrence: BR)
  Receive Date: 20171219
  Receipt Date: 20180513
  Transmission Date: 20180711
  Serious: No
  Sender: FDA-Public Use
  Company Number: BR-ABBVIE-17P-020-2198100-00

PATIENT
  Sex: Female

DRUGS (10)
  1. FENOFIBRATE 200 MG [Concomitant]
     Indication: BLOOD CHOLESTEROL
     Route: 048
  2. LACTULOSE (LACTULONA) [Concomitant]
     Indication: BOWEL MOVEMENT IRREGULARITY
     Route: 048
  3. ROSUVASTATIN CALCIUM (RUSOVAS) [Concomitant]
     Indication: HYPERTENSION
     Route: 048
  4. MEMANTINE HYDROCHLORIDE. [Concomitant]
     Active Substance: MEMANTINE HYDROCHLORIDE
     Indication: DEMENTIA ALZHEIMER^S TYPE
     Dosage: DAILY DOSAGE: 2 TABLET, IN THE MORNING/AFTER DINNER
     Route: 048
  5. DEPAKOTE [Suspect]
     Active Substance: DIVALPROEX SODIUM
     Indication: DEMENTIA ALZHEIMER^S TYPE
     Dosage: DAILY DOSAGE: 2 CAPSULE, AT NIGHT (BEDTIME)
     Route: 048
  6. ESCITALOPRAM OXALATE (ESCILEX) [Concomitant]
     Indication: DEMENTIA ALZHEIMER^S TYPE
     Dosage: IN THE MORNING
     Route: 048
  7. FENOFIBRATE 200 MG [Concomitant]
     Indication: BLOOD PRESSURE MEASUREMENT
  8. VITAMIN D [Concomitant]
     Active Substance: CHOLECALCIFEROL
     Indication: VITAMIN D DEFICIENCY
     Route: 048
  9. QUETIAPINE FUMARATE (QUEOPINE) [Concomitant]
     Indication: DEMENTIA ALZHEIMER^S TYPE
     Dosage: DAILY DOSAGE: 2 TABLET, IN THE MORNING/BEFORE BEDTIME (TOGETHER WITH DEPAKOTE SPRINKLE)
     Route: 048
  10. ROSUVASTATIN CALCIUM (RUSOVAS) [Concomitant]
     Indication: BLOOD CHOLESTEROL

REACTIONS (3)
  - Angina pectoris [Not Recovered/Not Resolved]
  - Off label use [Unknown]
  - Product use in unapproved indication [Unknown]
